FAERS Safety Report 15069621 (Version 1)
Quarter: 2018Q2

REPORT INFORMATION
  Report Type: Spontaneous
  Country: US (occurrence: US)
  Receive Date: 20180626
  Receipt Date: 20180626
  Transmission Date: 20180711
  Serious: Yes (Hospitalization)
  Sender: FDA-Public Use
  Company Number: US-ACTELION-A-NJ2018-174223

PATIENT
  Age: 1 Year
  Sex: Female
  Weight: 10.43 kg

DRUGS (4)
  1. TRACLEER [Suspect]
     Active Substance: BOSENTAN
     Indication: PULMONARY ARTERIAL HYPERTENSION
     Dosage: 15.6 MG, UNK
     Route: 048
  2. CHLOROTHIAZIDE. [Concomitant]
     Active Substance: CHLOROTHIAZIDE
     Dosage: 125 MG, UNK
  3. SILDENAFIL. [Concomitant]
     Active Substance: SILDENAFIL
     Dosage: 10 MG, TID
  4. FUROSEMIDE. [Concomitant]
     Active Substance: FUROSEMIDE
     Dosage: 50 MG, QD

REACTIONS (2)
  - Oxygen saturation abnormal [Unknown]
  - Nasopharyngitis [Unknown]

NARRATIVE: CASE EVENT DATE: 2018
